FAERS Safety Report 7667866-3 (Version None)
Quarter: 2011Q3

REPORT INFORMATION
  Report Type: 
  Country: None (occurrence: None)
  Receive Date: 20110806
  Receipt Date: 20110614
  Transmission Date: 20111222
  Serious: No
  Sender: FDA-Public Use
  Company Number: US-ABBOTT-11P-163-0732307-00

PATIENT
  Sex: Female

DRUGS (4)
  1. UNKNOWN BLOOD PRESSURE MEDICATION [Concomitant]
     Indication: HYPERTENSION
  2. COUMADIN [Concomitant]
     Indication: ANTICOAGULANT THERAPY
  3. COLESTID [Concomitant]
     Indication: PRODUCT USED FOR UNKNOWN INDICATION
  4. NIASPAN [Suspect]
     Indication: PRODUCT USED FOR UNKNOWN INDICATION
     Dates: start: 20110301, end: 20110601

REACTIONS (2)
  - PRURITUS GENERALISED [None]
  - FLUSHING [None]
